FAERS Safety Report 25900673 (Version 1)
Quarter: 2025Q4

REPORT INFORMATION
  Report Type: Spontaneous
  Country: US (occurrence: US)
  Receive Date: 20251009
  Receipt Date: 20251009
  Transmission Date: 20260117
  Serious: No
  Sender: SANDOZ
  Company Number: US-SANDOZ-SDZ2025US074350

PATIENT
  Sex: Female
  Weight: 61.224 kg

DRUGS (1)
  1. COMBIPATCH [Suspect]
     Active Substance: ESTRADIOL\NORETHINDRONE ACETATE
     Indication: Menopausal symptoms
     Dosage: UNK
     Route: 062
     Dates: start: 2024

REACTIONS (3)
  - Application site erosion [Unknown]
  - Application site discolouration [Unknown]
  - Application site irritation [Unknown]

NARRATIVE: CASE EVENT DATE: 20240101
